FAERS Safety Report 5628158-7 (Version None)
Quarter: 2008Q1

REPORT INFORMATION
  Report Type: 
  Country: None (occurrence: None)
  Receive Date: 20080215
  Receipt Date: 20080206
  Transmission Date: 20080703
  Serious: Yes (Hospitalization)
  Sender: FDA-Public Use
  Company Number: SE-PURDUE-GBR_2008_0003728

PATIENT
  Age: 40 Year
  Sex: Male

DRUGS (5)
  1. OXYCONTIN DEPOTTABLETIT [Suspect]
     Indication: PAIN
     Dosage: 5 MG, BID
     Route: 048
     Dates: start: 20071002, end: 20071007
  2. LACTULOSE [Suspect]
     Indication: DRUG USE FOR UNKNOWN INDICATION
     Dosage: 20 ML, DAILY
     Route: 048
     Dates: start: 20070927, end: 20071008
  3. OXYNORM [Suspect]
     Indication: PAIN
     Route: 065
  4. LAXOBERAL ^FERRING^ [Suspect]
     Indication: DRUG USE FOR UNKNOWN INDICATION
     Dosage: 10 ML, DAILY
     Route: 048
     Dates: start: 20070927, end: 20071008
  5. ALVEDON [Concomitant]
     Indication: DRUG USE FOR UNKNOWN INDICATION
     Dosage: UNK, UNK
     Route: 065

REACTIONS (3)
  - PRURITUS [None]
  - SWELLING [None]
  - URTICARIA [None]
